FAERS Safety Report 6169766-7 (Version None)
Quarter: 2009Q2

REPORT INFORMATION
  Report Type: 
  Country: None (occurrence: None)
  Receive Date: 20090428
  Receipt Date: 20090417
  Transmission Date: 20091009
  Serious: Yes (Hospitalization)
  Sender: FDA-Public Use
  Company Number: NL-AMGEN-UK342022

PATIENT
  Sex: Female

DRUGS (6)
  1. ARANESP [Suspect]
     Indication: ANAEMIA
     Route: 058
     Dates: start: 20090121
  2. LEVOTHYROXINE SODIUM [Concomitant]
     Route: 048
  3. THIAMAZOLE [Concomitant]
     Route: 048
  4. TIOTROPIUM BROMIDE [Concomitant]
  5. FORMOTEROL FUMARATE [Concomitant]
  6. DEXAMETHASONE [Concomitant]
     Route: 048

REACTIONS (2)
  - DIZZINESS [None]
  - VISUAL IMPAIRMENT [None]
